FAERS Safety Report 9893609 (Version 2)
Quarter: 2014Q1

REPORT INFORMATION
  Report Type: Spontaneous
  Country: US (occurrence: US)
  Receive Date: 20140213
  Receipt Date: 20140220
  Transmission Date: 20141002
  Serious: Yes (Death, Life-Threatening, Other)
  Sender: FDA-Public Use
  Company Number: US-MERCK-1402USA005833

PATIENT
  Sex: Male
  Weight: 81.63 kg

DRUGS (1)
  1. JANUVIA [Suspect]
     Indication: TYPE 2 DIABETES MELLITUS
     Dosage: 50 MG, QD
     Route: 048
     Dates: start: 20071214, end: 20100105

REACTIONS (10)
  - Pancreatic carcinoma [Unknown]
  - Cardiac arrest [Fatal]
  - Prostate cancer [Fatal]
  - Hypertension [Unknown]
  - Gastrooesophageal reflux disease [Unknown]
  - Anaemia [Unknown]
  - Anaemia [Unknown]
  - Large intestine polyp [Unknown]
  - Arterial disorder [Unknown]
  - Radiotherapy [Unknown]
